FAERS Safety Report 9380083 (Version 2)
Quarter: 2013Q3

REPORT INFORMATION
  Report Type: Spontaneous
  Country: IT (occurrence: IT)
  Receive Date: 20130702
  Receipt Date: 20130708
  Transmission Date: 20140515
  Serious: Yes (Hospitalization)
  Sender: FDA-Public Use
  Company Number: IT-B.I. PHARMACEUTICALS,INC./RIDGEFIELD-2013-IT-00374IT

PATIENT
  Age: 89 Year
  Sex: Female

DRUGS (6)
  1. CATAPRESAN [Suspect]
     Indication: HYPERTENSIVE CRISIS
     Dosage: 75 MCG
     Route: 030
     Dates: start: 20130426, end: 20130426
  2. OMEPRAZOLO [Concomitant]
  3. LASIX [Concomitant]
  4. LOSARTAN ACTAVIS [Concomitant]
  5. SEQUACOR [Concomitant]
     Indication: ATRIAL FIBRILLATION
     Dosage: 1.25 MG
     Route: 048
  6. COUMADIN [Concomitant]

REACTIONS (2)
  - Hypotension [Recovered/Resolved]
  - Bradycardia [Recovered/Resolved]
